FAERS Safety Report 12637040 (Version 1)
Quarter: 2016Q3

REPORT INFORMATION
  Report Type: Not Available
  Country: US (occurrence: US)
  Receive Date: 20160809
  Receipt Date: 20160809
  Transmission Date: 20161109
  Serious: Yes (Other)
  Sender: FDA-Public Use
  Company Number: US-BEH-2014042185

PATIENT
  Sex: Female
  Weight: 82 kg

DRUGS (1)
  1. PRIVIGEN [Suspect]
     Active Substance: HUMAN IMMUNOGLOBULIN G
     Indication: IMMUNODEFICIENCY COMMON VARIABLE
     Dosage: THE STARTING RATE WAS 50 ML/HR; THE RATE WAS INCREASED TWO HOURS LATER TO 200 ML/HR
     Route: 042
     Dates: start: 20130514

REACTIONS (4)
  - Drug ineffective [Unknown]
  - Vomiting [Unknown]
  - Headache [Unknown]
  - Nausea [Unknown]
